FAERS Safety Report 7653100-7 (Version None)
Quarter: 2011Q3

REPORT INFORMATION
  Report Type: 
  Country: None (occurrence: None)
  Receive Date: 20110803
  Receipt Date: 20110801
  Transmission Date: 20111222
  Serious: Yes (Other)
  Sender: FDA-Public Use
  Company Number: US-PFIZER INC-2011175568

PATIENT
  Sex: Male
  Weight: 66 kg

DRUGS (5)
  1. LIPITOR [Suspect]
     Indication: BLOOD CHOLESTEROL INCREASED
     Dosage: 40 MG, 1X/DAY
     Dates: start: 20031201, end: 20060714
  2. ZETIA [Suspect]
     Dosage: UNK
  3. TOPROL-XL [Concomitant]
     Indication: CARDIAC DISORDER
     Dosage: UNK
  4. BENICAR HCT [Concomitant]
     Indication: CARDIAC DISORDER
     Dosage: UNK
  5. COENZYME Q10 [Concomitant]
     Indication: MEMORY IMPAIRMENT
     Dosage: UNK

REACTIONS (4)
  - BLOOD CHOLESTEROL ABNORMAL [None]
  - VITAMIN D DECREASED [None]
  - ELECTROLYTE IMBALANCE [None]
  - GLUCOSE TOLERANCE IMPAIRED [None]
